FAERS Safety Report 6980830-2 (Version None)
Quarter: 2010Q3

REPORT INFORMATION
  Report Type: 
  Country: None (occurrence: None)
  Receive Date: 20100826
  Receipt Date: 20090627
  Transmission Date: 20110219
  Serious: No
  Sender: FDA-Public Use
  Company Number: 2009-00260

PATIENT
  Age: 57 Year
  Sex: Male
  Weight: 91.173 kg

DRUGS (4)
  1. ZICAM COLD REMEDY NASAL GEL [Suspect]
     Dosage: SPORADIC, 2 YEARS
     Dates: start: 20030101, end: 20050101
  2. DIOVAN [Concomitant]
  3. LIPITOR [Concomitant]
  4. OMEPRAZOLE [Concomitant]

REACTIONS (2)
  - ANOSMIA [None]
  - BURNING SENSATION [None]
